FAERS Safety Report 11739170 (Version 1)
Quarter: 2015Q4

REPORT INFORMATION
  Report Type: Spontaneous
  Country: US (occurrence: US)
  Receive Date: 20151113
  Receipt Date: 20151113
  Transmission Date: 20160304
  Serious: No
  Sender: FDA-Public Use
  Company Number: US-ROCHE-1275936

PATIENT
  Age: 36 Year
  Sex: Female

DRUGS (4)
  1. KADCYLA [Suspect]
     Active Substance: ADO-TRASTUZUMAB EMTANSINE
     Indication: BREAST CANCER STAGE IV
     Route: 065
     Dates: start: 201305
  2. LISINOPRIL. [Concomitant]
     Active Substance: LISINOPRIL
  3. ZOMETA [Concomitant]
     Active Substance: ZOLEDRONIC ACID
  4. KADCYLA [Suspect]
     Active Substance: ADO-TRASTUZUMAB EMTANSINE
     Indication: BREAST CANCER METASTATIC

REACTIONS (3)
  - Dry eye [Unknown]
  - Visual impairment [Not Recovered/Not Resolved]
  - Vision blurred [Not Recovered/Not Resolved]

NARRATIVE: CASE EVENT DATE: 201307
